FAERS Safety Report 7778828 (Version 2)
Quarter: 2013Q2

REPORT INFORMATION
  Report Type: Spontaneous
  Country: AU (occurrence: AU)
  Receive Date: 20110128
  Receipt Date: 20130502
  Transmission Date: 20140414
  Serious: Yes (Disabling)
  Sender: FDA-Public Use
  Company Number: AU-MERCK-1101USA01866

PATIENT
  Age: 8 Year
  Sex: Female
  Weight: 27 kg

DRUGS (1)
  1. SINGULAIR [Suspect]
     Dosage: 5 MG, QD
     Route: 048
     Dates: start: 20090220, end: 20100801

REACTIONS (5)
  - Suicidal ideation [Not Recovered/Not Resolved]
  - Anxiety [Not Recovered/Not Resolved]
  - Decreased appetite [Not Recovered/Not Resolved]
  - Palpitations [Not Recovered/Not Resolved]
  - Depression [Not Recovered/Not Resolved]
